FAERS Safety Report 8987175 (Version 3)
Quarter: 2013Q1

REPORT INFORMATION
  Report Type: Spontaneous
  Country: US (occurrence: US)
  Receive Date: 20121226
  Receipt Date: 20130315
  Transmission Date: 20140127
  Serious: Yes (Congenital Anomaly)
  Sender: FDA-Public Use
  Company Number: US-009507513-1212USA009835

PATIENT
  Age: 0 Year
  Sex: Female

DRUGS (8)
  1. ISENTRESS [Suspect]
     Dosage: 800 MG, QD
     Route: 064
     Dates: start: 20120924
  2. COMBIVIR [Suspect]
     Dosage: 2 DF, QD
     Route: 064
     Dates: start: 20120924
  3. KALETRA [Suspect]
     Dosage: 1 DF,
     Route: 064
     Dates: start: 20120924
  4. ALUVIA [Suspect]
     Dosage: 4 DF, QD
     Route: 064
     Dates: start: 20120924
  5. RETROVIR [Suspect]
     Dosage: 147 MG/KG/HR
     Route: 064
     Dates: start: 20121121, end: 20121121
  6. RETROVIR [Suspect]
     Dosage: 74 MG/KG/HR
     Route: 064
     Dates: start: 20121121, end: 20121121
  7. CYTOMEGALOVIRUS IMMUNE GLOBULIN [Concomitant]
     Dosage: UNK
     Route: 042
  8. SULFAMETHOXAZOLE (+) TRIMETHOPRIM [Concomitant]
     Dosage: UNK

REACTIONS (4)
  - Trisomy 21 [Unknown]
  - Atrial septal defect [Unknown]
  - Foetal exposure during pregnancy [Unknown]
  - Low birth weight baby [Unknown]
